FAERS Safety Report 4744468-X (Version None)
Quarter: 2005Q3

REPORT INFORMATION
  Report Type: 
  Country: None (occurrence: None)
  Receive Date: 20050811
  Receipt Date: 20050811
  Transmission Date: 20060218
  Serious: Yes (Life-Threatening, Hospitalization)
  Sender: FDA-Public Use
  Company Number: None

PATIENT
  Age: 68 Year
  Sex: Male
  Weight: 89.8 kg

DRUGS (13)
  1. CETUXIMAB [Suspect]
     Indication: COLON CANCER
     Dosage: 840 MG DAY 1     INTRAVENOU
     Route: 042
     Dates: start: 20050718, end: 20050718
  2. DIPHENHYDRAMINE HCL [Concomitant]
  3. DEXAMETHASONE [Concomitant]
  4. DARBEPOETIN [Concomitant]
  5. ASPIRIN [Concomitant]
  6. MULTI-VITAMIN [Concomitant]
  7. LOMOTIL [Concomitant]
  8. FOLIC ACID-VITAMIN B6-VITAMIN B-12 [Concomitant]
  9. GEMFIBROZIL [Concomitant]
  10. NPH INSULIN [Concomitant]
  11. NOVOLOG [Concomitant]
  12. LISINOPRIL [Concomitant]
  13. PRILOSEC [Concomitant]

REACTIONS (6)
  - BLOOD PRESSURE DECREASED [None]
  - CONFUSIONAL STATE [None]
  - INFUSION RELATED REACTION [None]
  - LOSS OF CONSCIOUSNESS [None]
  - PULSE ABSENT [None]
  - RESTLESSNESS [None]
